FAERS Safety Report 8547905 (Version 2)
Quarter: 2012Q4

REPORT INFORMATION
  Report Type: 
  Country: US (occurrence: US)
  Receive Date: 20120504
  Receipt Date: 20120911
  Transmission Date: 20130627
  Serious: Yes (Other)
  Sender: FDA-Public Use
  Company Number: US-PFIZER INC-2012107746

PATIENT
  Age: 27 Year
  Sex: Male

DRUGS (1)
  1. CHANTIX [Suspect]
     Indication: SMOKING CESSATION THERAPY
     Dosage: UNK
     Dates: start: 200904, end: 200907

REACTIONS (7)
  - Suicidal ideation [Recovered/Resolved]
  - Depression [Not Recovered/Not Resolved]
  - Agitation [Unknown]
  - Anxiety [Not Recovered/Not Resolved]
  - Anger [Unknown]
  - Insomnia [Unknown]
  - Abnormal dreams [Unknown]
